FAERS Safety Report 12172886 (Version 1)
Quarter: 2016Q1

REPORT INFORMATION
  Report Type: Report from Study
  Country: IT (occurrence: IT)
  Receive Date: 20160311
  Receipt Date: 20160311
  Transmission Date: 20160526
  Serious: Yes (Death, Other)
  Sender: FDA-Public Use
  Company Number: IT-BRISTOL-MYERS SQUIBB COMPANY-BMS-2016-017599

PATIENT
  Age: 67 Year
  Sex: Male

DRUGS (1)
  1. NIVOLUMAB [Suspect]
     Active Substance: NIVOLUMAB
     Indication: NON-SMALL CELL LUNG CANCER
     Dosage: 180 MG, Q2WK
     Route: 042
     Dates: start: 20160226, end: 20160228

REACTIONS (8)
  - Pleural effusion [Fatal]
  - Malignant neoplasm progression [Fatal]
  - Circulatory collapse [Fatal]
  - Laboratory test abnormal [Unknown]
  - Metabolic acidosis [Unknown]
  - Gastric haemorrhage [Fatal]
  - Dyspnoea [Recovered/Resolved]
  - Abdominal pain upper [Recovered/Resolved]

NARRATIVE: CASE EVENT DATE: 20160228
